FAERS Safety Report 10346027 (Version 2)
Quarter: 2014Q3

REPORT INFORMATION
  Report Type: Spontaneous
  Country: US (occurrence: US)
  Receive Date: 20140728
  Receipt Date: 20140912
  Transmission Date: 20150326
  Serious: Yes (Other)
  Sender: FDA-Public Use
  Company Number: US-FRI-1000069170

PATIENT
  Age: 53 Year
  Sex: Female
  Weight: 63 kg

DRUGS (3)
  1. ARMOUR THYROID [Suspect]
     Active Substance: THYROID, PORCINE\THYROID, UNSPECIFIED
     Indication: HYPOTHYROIDISM
     Dosage: 120MG
     Route: 048
     Dates: start: 201103, end: 201407
  2. SUPPLEMENTS (NOS) [Concomitant]
  3. ARMOUR THYROID [Suspect]
     Active Substance: THYROID, PORCINE\THYROID, UNSPECIFIED
     Dosage: 180MG
     Route: 048
     Dates: start: 201407, end: 201407

REACTIONS (11)
  - Weight decreased [Recovering/Resolving]
  - Body temperature decreased [Recovering/Resolving]
  - Decreased appetite [Recovering/Resolving]
  - Vision blurred [Recovering/Resolving]
  - Anxiety [Recovering/Resolving]
  - Suicidal ideation [Recovered/Resolved]
  - Feeling abnormal [Recovering/Resolving]
  - Hyperthyroidism [Recovering/Resolving]
  - Unevaluable event [Recovering/Resolving]
  - Dementia [Recovering/Resolving]
  - Depression [Recovering/Resolving]

NARRATIVE: CASE EVENT DATE: 201103
